FAERS Safety Report 6358946-3 (Version None)
Quarter: 2009Q3

REPORT INFORMATION
  Report Type: 
  Country: None (occurrence: None)
  Receive Date: 20090914
  Receipt Date: 20090903
  Transmission Date: 20100115
  Serious: Yes (Death)
  Sender: FDA-Public Use
  Company Number: GXKR2009DE09882

PATIENT
  Age: 58 Year
  Sex: Male

DRUGS (5)
  1. TRAMADOL HCL [Suspect]
     Dosage: PACKAGES FOUND AT THE DEATH SITE
  2. DOXEPIN HCL [Suspect]
     Dosage: ORAL
     Route: 048
  3. TRIMIPRAMINE (TRIMIPRAMINE) TABLET [Concomitant]
  4. DIAZEPAM [Concomitant]
  5. METHADONE HCL [Concomitant]

REACTIONS (6)
  - CARDIOMEGALY [None]
  - DRUG INTERACTION [None]
  - DRUG LEVEL ABOVE THERAPEUTIC [None]
  - DRUG TOXICITY [None]
  - MEDICATION RESIDUE [None]
  - PNEUMONIA [None]
